FAERS Safety Report 5342528-6 (Version None)
Quarter: 2007Q2

REPORT INFORMATION
  Report Type: 
  Country: None (occurrence: None)
  Receive Date: 20070601
  Receipt Date: 20070522
  Transmission Date: 20071010
  Serious: Yes (Life-Threatening, Hospitalization)
  Sender: FDA-Public Use
  Company Number: US-PFIZER INC-2007020561

PATIENT
  Sex: Female
  Weight: 87.1 kg

DRUGS (10)
  1. SUTENT [Suspect]
     Indication: GASTROINTESTINAL STROMAL TUMOUR
     Dosage: DAILY DOSE:50MG-FREQ:DAILY
     Route: 048
  2. OXYCONTIN [Concomitant]
     Route: 048
  3. IRON SULFATETHIAMIN COMPOUND TAB [Concomitant]
     Route: 048
  4. AVALIDE [Concomitant]
     Route: 048
  5. METFORMIN HCL [Concomitant]
     Route: 048
  6. CENTRUM SILVER [Concomitant]
     Dosage: TEXT:ONE TABLET-FREQ:DAILY
     Route: 048
  7. SYNTHROID [Concomitant]
     Route: 048
  8. ZOLOFT [Concomitant]
     Route: 048
  9. ZYPREXA [Concomitant]
     Route: 048
  10. MIRAPEX [Concomitant]
     Route: 048

REACTIONS (6)
  - ACUTE PRERENAL FAILURE [None]
  - DEHYDRATION [None]
  - NAUSEA [None]
  - NEPHRITIS INTERSTITIAL [None]
  - URINARY TRACT INFECTION [None]
  - VOMITING [None]
